FAERS Safety Report 13787490 (Version 2)
Quarter: 2017Q4

REPORT INFORMATION
  Report Type: Spontaneous
  Country: US (occurrence: US)
  Receive Date: 20170725
  Receipt Date: 20171010
  Transmission Date: 20180320
  Serious: No
  Sender: FDA-Public Use
  Company Number: US-JNJFOC-20170706321

PATIENT
  Sex: Female

DRUGS (1)
  1. TYLENOL EXTRA STRENGTH [Suspect]
     Active Substance: ACETAMINOPHEN
     Indication: MIGRAINE
     Dosage: 8-9 CAPLETS PER DAY, 6 TABLETS A DAY ATLEAST, 40 YEARS AGO
     Route: 048

REACTIONS (2)
  - Drug administration error [Unknown]
  - Overdose [Unknown]
